FAERS Safety Report 5950142-4 (Version None)
Quarter: 2008Q4

REPORT INFORMATION
  Report Type: 
  Country: None (occurrence: None)
  Receive Date: 20081112
  Receipt Date: 20080208
  Transmission Date: 20090506
  Serious: No
  Sender: FDA-Public Use
  Company Number: US-BAYER-200813607NA

PATIENT
  Sex: Female

DRUGS (1)
  1. BETAPACE [Suspect]
     Indication: ATRIAL FIBRILLATION
     Route: 048

REACTIONS (3)
  - DIZZINESS [None]
  - NAUSEA [None]
  - PALPITATIONS [None]
